FAERS Safety Report 25479145 (Version 2)
Quarter: 2025Q3

REPORT INFORMATION
  Report Type: Spontaneous
  Country: BR (occurrence: BR)
  Receive Date: 20250625
  Receipt Date: 20250708
  Transmission Date: 20251021
  Serious: Yes (Other)
  Sender: GUERBET
  Company Number: BR-GUERBET / GUERBET PRODUTOS RADIOLOGICOS LTDA-BR-20250150

PATIENT
  Age: 18 Year
  Sex: Female
  Weight: 48 kg

DRUGS (1)
  1. DOTAREM [Suspect]
     Active Substance: GADOTERATE MEGLUMINE
     Indication: Pituitary scan
     Route: 042
     Dates: start: 20250607, end: 20250607

REACTIONS (5)
  - Nausea [Recovered/Resolved]
  - Vision blurred [Recovered/Resolved]
  - Vomiting [Recovered/Resolved]
  - Seizure [Recovered/Resolved]
  - Petechiae [Recovered/Resolved]

NARRATIVE: CASE EVENT DATE: 20250607
